FAERS Safety Report 5297820-0 (Version None)
Quarter: 2007Q2

REPORT INFORMATION
  Report Type: 
  Country: None (occurrence: None)
  Receive Date: 20070413
  Receipt Date: 20070413
  Transmission Date: 20071010
  Serious: No
  Sender: FDA-Public Use
  Company Number: None

PATIENT
  Age: 33 Year
  Sex: Male
  Weight: 97.5234 kg

DRUGS (1)
  1. AMOXICILLIN [Suspect]
     Indication: SINUSITIS
     Dosage: 500MG THREE TIMES A DAY ORAL
     Route: 048
     Dates: start: 20070404, end: 20070412

REACTIONS (2)
  - ERYTHEMA [None]
  - PRURITUS [None]
